FAERS Safety Report 13830273 (Version 2)
Quarter: 2017Q4

REPORT INFORMATION
  Report Type: Spontaneous
  Country: US (occurrence: US)
  Receive Date: 20170803
  Receipt Date: 20171102
  Transmission Date: 20180320
  Serious: No
  Sender: FDA-Public Use
  Company Number: US-SA-2017SA121407

PATIENT
  Age: 70 Year
  Sex: Female
  Weight: 102.05 kg

DRUGS (9)
  1. ALIROCUMAB PREFILLED PEN [Suspect]
     Active Substance: ALIROCUMAB
     Indication: BLOOD CHOLESTEROL INCREASED
     Dates: start: 20160301, end: 20170623
  2. LEVOTHYROXINE. [Concomitant]
     Active Substance: LEVOTHYROXINE
     Indication: HYPOTHYROIDISM
     Dosage: 150MG
     Route: 065
     Dates: start: 1975
  3. SYMBICORT [Concomitant]
     Active Substance: BUDESONIDE\FORMOTEROL FUMARATE DIHYDRATE
     Dosage: 160 MG; 2 SPRAY PER DAY
     Route: 065
  4. ALIROCUMAB PREFILLED PEN [Suspect]
     Active Substance: ALIROCUMAB
     Indication: BLOOD CHOLESTEROL INCREASED
     Dates: start: 20170630
  5. CLOPIDOGREL [Concomitant]
     Active Substance: CLOPIDOGREL BISULFATE
     Indication: STENT PLACEMENT
     Dosage: 75MG
     Route: 065
     Dates: start: 2014
  6. GABAPENTIN. [Concomitant]
     Active Substance: GABAPENTIN
     Route: 065
  7. PRALUENT [Suspect]
     Active Substance: ALIROCUMAB
     Indication: BLOOD CHOLESTEROL INCREASED
     Route: 058
     Dates: start: 20160301, end: 20170623
  8. PRALUENT [Suspect]
     Active Substance: ALIROCUMAB
     Indication: BLOOD CHOLESTEROL INCREASED
     Route: 058
     Dates: start: 20170630
  9. METOPROLOL. [Concomitant]
     Active Substance: METOPROLOL
     Route: 065

REACTIONS (1)
  - Incorrect dose administered [Unknown]
